FAERS Safety Report 8756929 (Version 1)
Quarter: 2012Q4

REPORT INFORMATION
  Report Type: 
  Country: US (occurrence: US)
  Receive Date: 20120828
  Receipt Date: 20120828
  Transmission Date: 20130627
  Serious: Yes (Hospitalization)
  Sender: FDA-Public Use
  Company Number: US-BAYER-2012-086656

PATIENT
  Age: 18 Year
  Sex: Female

DRUGS (12)
  1. YASMIN [Suspect]
  2. YAZ [Suspect]
  3. CLARITIN [Concomitant]
     Dosage: UNK
     Route: 048
  4. PSEUDOEPHEDRINE [Concomitant]
  5. ZYRTEC [Concomitant]
     Dosage: 10 mg, UNK
     Route: 048
  6. BENADRYL [Concomitant]
     Dosage: PRN
     Route: 048
  7. MEDROL [Concomitant]
     Route: 048
  8. PROTONIX [Concomitant]
     Dosage: 40 mg, Daily
     Route: 048
  9. XANAX [Concomitant]
  10. PREDNISONE [Concomitant]
  11. ATIVAN [Concomitant]
     Indication: ANXIETY
     Dosage: every 4-6 hours PRN
  12. DARVOCET-N [Concomitant]
     Indication: PAIN

REACTIONS (1)
  - Pulmonary embolism [Recovered/Resolved]
